FAERS Safety Report 4844916-0 (Version None)
Quarter: 2005Q4

REPORT INFORMATION
  Report Type: 
  Country: None (occurrence: None)
  Receive Date: 20051128
  Receipt Date: 20051118
  Transmission Date: 20060501
  Serious: Yes (Life-Threatening)
  Sender: FDA-Public Use
  Company Number: 2005-11-0549

PATIENT
  Age: 74 Year
  Sex: Male

DRUGS (7)
  1. FLUTAMIDE [Suspect]
     Indication: PROSTATE CANCER
     Dosage: 375 MG ORAL
     Route: 048
     Dates: start: 20050809, end: 20051003
  2. LEUPRORELIN ACETATE INJECTABLE [Suspect]
     Indication: PROSTATE CANCER
     Dosage: 375 MG SUBCUTANEOUS
     Route: 058
     Dates: start: 20011101, end: 20050825
  3. MELOXICAM [Suspect]
     Indication: PROSTATE CANCER
     Dosage: 10 MG ORAL
     Route: 048
     Dates: start: 20050809, end: 20051102
  4. DICLOFENAC SODIUM [Suspect]
     Indication: PROSTATE CANCER
     Dosage: 75 MG RECTAL
     Route: 054
     Dates: start: 20050809
  5. FERROUS CITRATE [Concomitant]
  6. MOSAPRIDE CITRATE(BENZAMINE CITRATE) [Concomitant]
  7. TAMSULOSIN HCL [Concomitant]

REACTIONS (9)
  - ABDOMINAL PAIN [None]
  - APLASTIC ANAEMIA [None]
  - DECREASED ACTIVITY [None]
  - FLATULENCE [None]
  - HAEMOLYTIC ANAEMIA [None]
  - HERPES VIRUS INFECTION [None]
  - METASTASES TO BONE [None]
  - ORAL INTAKE REDUCED [None]
  - VOMITING [None]
